FAERS Safety Report 25254440 (Version 1)
Quarter: 2025Q2

REPORT INFORMATION
  Report Type: Report from Study
  Country: CN (occurrence: CN)
  Receive Date: 20250430
  Receipt Date: 20250430
  Transmission Date: 20250716
  Serious: Yes (Other)
  Sender: ROCHE
  Company Number: CN-ROCHE-10000268512

PATIENT
  Age: 62 Year
  Sex: Male
  Weight: 57.4 kg

DRUGS (24)
  1. POLATUZUMAB VEDOTIN [Suspect]
     Active Substance: POLATUZUMAB VEDOTIN
     Indication: Diffuse large B-cell lymphoma
     Route: 042
     Dates: start: 20240531, end: 20240531
  2. POLATUZUMAB VEDOTIN [Suspect]
     Active Substance: POLATUZUMAB VEDOTIN
     Route: 042
     Dates: start: 20240816, end: 20240816
  3. RITUXIMAB [Suspect]
     Active Substance: RITUXIMAB
     Indication: Diffuse large B-cell lymphoma
     Route: 042
     Dates: start: 20240815, end: 20240815
  4. RITUXIMAB [Suspect]
     Active Substance: RITUXIMAB
     Route: 042
     Dates: start: 20240530, end: 20240530
  5. CYCLOPHOSPHAMIDE [Suspect]
     Active Substance: CYCLOPHOSPHAMIDE
     Indication: Diffuse large B-cell lymphoma
     Route: 042
     Dates: start: 20240816, end: 20240816
  6. CYCLOPHOSPHAMIDE [Suspect]
     Active Substance: CYCLOPHOSPHAMIDE
     Route: 042
     Dates: start: 20240531, end: 20240531
  7. DOXORUBICIN [Suspect]
     Active Substance: DOXORUBICIN
     Indication: Diffuse large B-cell lymphoma
     Route: 042
     Dates: start: 20240816, end: 20240816
  8. DOXORUBICIN [Suspect]
     Active Substance: DOXORUBICIN
     Route: 042
     Dates: start: 20240531, end: 20240531
  9. PREDNISONE [Suspect]
     Active Substance: PREDNISONE
     Indication: Diffuse large B-cell lymphoma
     Route: 048
     Dates: start: 20240531, end: 20240604
  10. PREDNISONE [Suspect]
     Active Substance: PREDNISONE
     Route: 048
     Dates: start: 20240816, end: 20240820
  11. extended-release tablets [Concomitant]
     Route: 048
     Dates: start: 20240530
  12. leucogen  tablet [Concomitant]
     Route: 048
     Dates: start: 20240530
  13. prednisone acetate  tablet [Concomitant]
     Route: 048
     Dates: start: 20240530
  14. Ceftazidime  for injection [Concomitant]
     Route: 042
     Dates: start: 20240902, end: 20240905
  15. Acetylcysteine tablets [Concomitant]
     Route: 048
     Dates: start: 20240904
  16. Celecoxib  capsules [Concomitant]
     Indication: Analgesic therapy
     Route: 048
     Dates: start: 20240904, end: 20240906
  17. Palonosetron hydrochloride capsules [Concomitant]
     Indication: Vomiting
     Route: 048
     Dates: start: 20240904, end: 20240904
  18. Methylprednisolone sodium succinate  for injection [Concomitant]
     Route: 042
     Dates: start: 20240905, end: 20240905
  19. PROMETHAZINE [Concomitant]
     Active Substance: PROMETHAZINE HYDROCHLORIDE
     Indication: Vomiting
     Route: 030
     Dates: start: 20240905, end: 20240905
  20. Omeprazole enteric-coated capsules [Concomitant]
     Route: 048
     Dates: start: 20240906, end: 20240910
  21. Omeprazole enteric-coated capsules [Concomitant]
     Route: 048
     Dates: start: 20240905, end: 20240905
  22. Omeprazole enteric-coated capsules [Concomitant]
     Route: 048
     Dates: start: 20240930, end: 20241002
  23. Oxizolam [Concomitant]
     Route: 048
     Dates: start: 20240930
  24. VALACYCLOVIR HYDROCHLORIDE [Concomitant]
     Active Substance: VALACYCLOVIR HYDROCHLORIDE
     Route: 048
     Dates: start: 20240930

REACTIONS (2)
  - White blood cell count decreased [Recovering/Resolving]
  - Neutropenia [Recovered/Resolved]

NARRATIVE: CASE EVENT DATE: 20240902
